FAERS Safety Report 9096788 (Version 2)
Quarter: 2013Q2

REPORT INFORMATION
  Report Type: Spontaneous
  Country: CA (occurrence: CA)
  Receive Date: 20130211
  Receipt Date: 20130423
  Transmission Date: 20140414
  Serious: Yes (Other)
  Sender: FDA-Public Use
  Company Number: CA-BAYER-2013-013251

PATIENT
  Age: 61 Year
  Sex: Male

DRUGS (7)
  1. CIPRO XL [Suspect]
     Indication: PROSTATITIS
     Dosage: UNK
  2. CIPRO [Interacting]
     Indication: PROSTATITIS
     Dosage: 500 MG, BID FOR OVER A DECADE
  3. CIPRO [Interacting]
     Indication: PROSTATITIS
     Dosage: UNK
     Dates: start: 2012, end: 20120610
  4. CIPRO [Interacting]
     Indication: PROSTATITIS
     Dosage: UNK
     Dates: start: 2013, end: 201301
  5. ADALAT XL [Interacting]
     Indication: HYPERTENSION
     Dosage: 30 MG, UNK
  6. DIOVAN [Concomitant]
     Indication: HYPERTENSION
     Dosage: UNK
  7. HCT [Concomitant]
     Indication: HYPERTENSION
     Dosage: UNK

REACTIONS (10)
  - Blood pressure increased [None]
  - Nausea [None]
  - Malaise [None]
  - Abdominal pain upper [None]
  - Abdominal distension [None]
  - Inappropriate schedule of drug administration [None]
  - Mood altered [None]
  - Insomnia [None]
  - Arthralgia [None]
  - Renal pain [None]
